FAERS Safety Report 7504128-9 (Version None)
Quarter: 2011Q2

REPORT INFORMATION
  Report Type: 
  Country: None (occurrence: None)
  Receive Date: 20110524
  Receipt Date: 20110524
  Transmission Date: 20111010
  Serious: No
  Sender: FDA-Public Use
  Company Number: None

PATIENT
  Sex: Male
  Weight: 113.3993 kg

DRUGS (1)
  1. FELODIPINE [Suspect]
     Indication: BLOOD PRESSURE
     Dosage: 2.5 MG 1/DAY ORAL
     Route: 048
     Dates: start: 20110408, end: 20110424

REACTIONS (2)
  - RASH GENERALISED [None]
  - BRONCHITIS [None]
